FAERS Safety Report 9433061 (Version 2)
Quarter: 2014Q2

REPORT INFORMATION
  Report Type: Spontaneous
  Country: IT (occurrence: IT)
  Receive Date: 20130731
  Receipt Date: 20140418
  Transmission Date: 20141212
  Serious: Yes (Other)
  Sender: FDA-Public Use
  Company Number: IT-JNJFOC-20130715100

PATIENT
  Age: 71 Year
  Sex: Female
  Weight: 66 kg

DRUGS (5)
  1. REMICADE [Suspect]
     Indication: RHEUMATOID ARTHRITIS
     Dosage: CYCLIC
     Route: 042
     Dates: start: 19990901
  2. REMICADE [Suspect]
     Indication: RHEUMATOID ARTHRITIS
     Route: 042
     Dates: start: 20121221, end: 20121221
  3. METHOTREXATE [Concomitant]
     Indication: RHEUMATOID ARTHRITIS
     Route: 065
     Dates: start: 19990101, end: 20130331
  4. PREDNISOLONE [Concomitant]
     Indication: RHEUMATOID ARTHRITIS
     Route: 065
     Dates: start: 19990101, end: 20130331
  5. FOLIC ACID [Concomitant]
     Route: 065

REACTIONS (1)
  - Clear cell renal cell carcinoma [Not Recovered/Not Resolved]
